FAERS Safety Report 13242036 (Version 1)
Quarter: 2017Q1

REPORT INFORMATION
  Report Type: Spontaneous
  Country: US (occurrence: US)
  Receive Date: 20170217
  Receipt Date: 20170217
  Transmission Date: 20170428
  Serious: No
  Sender: FDA-Public Use
  Company Number: US-ELI_LILLY_AND_COMPANY-US201702006074

PATIENT
  Age: 25 Year
  Sex: Male

DRUGS (1)
  1. CIALIS [Suspect]
     Active Substance: TADALAFIL
     Indication: SUBSTANCE USE
     Dosage: UNK, UNKNOWN
     Route: 065

REACTIONS (2)
  - Scar [Unknown]
  - Drug abuse [Unknown]
